FAERS Safety Report 6841495-3 (Version None)
Quarter: 2010Q3

REPORT INFORMATION
  Report Type: 
  Country: None (occurrence: None)
  Receive Date: 20100709
  Receipt Date: 20100628
  Transmission Date: 20110219
  Serious: Yes (Hospitalization)
  Sender: FDA-Public Use
  Company Number: 008814

PATIENT
  Sex: Female
  Weight: 74.7 kg

DRUGS (12)
  1. KEPPRA [Suspect]
     Indication: CONVULSION
     Dosage: (1000 MG BID ORAL), (1000 MG QD), (1500 MG QD)
     Route: 048
  2. KEPPRA [Suspect]
     Indication: CONVULSION
     Dosage: (500 MG BID)
  3. AGGRENOX [Concomitant]
  4. BETAPACE [Concomitant]
  5. BYETTA [Concomitant]
  6. COUMADIN [Concomitant]
  7. CRESTOR [Concomitant]
  8. HYDROCHLOROTHIAZIDE [Concomitant]
  9. LANTUS [Concomitant]
  10. LOTREL [Concomitant]
  11. NITROGLYCERIN [Concomitant]
  12. RANEXA [Concomitant]

REACTIONS (4)
  - CHEST PAIN [None]
  - CONFUSIONAL STATE [None]
  - HEADACHE [None]
  - SYNCOPE [None]
